FAERS Safety Report 5679548-8 (Version None)
Quarter: 2008Q1

REPORT INFORMATION
  Report Type: 
  Country: None (occurrence: None)
  Receive Date: 20080324
  Receipt Date: 20080313
  Transmission Date: 20080703
  Serious: Yes (Hospitalization)
  Sender: FDA-Public Use
  Company Number: 2008-00300

PATIENT
  Age: 63 Year
  Sex: Female
  Weight: 72.6 kg

DRUGS (13)
  1. VELCADE [Suspect]
     Indication: MULTIPLE MYELOMA
     Dosage: 1.00 MG/M2, INTRAVENOUS
     Route: 042
     Dates: start: 20070901, end: 20071001
  2. DEXAMETHASONE TAB [Concomitant]
  3. COMBIVENT [Concomitant]
  4. MS CONTIN [Concomitant]
  5. PROCARDIA XL [Concomitant]
  6. ATENOLOL [Concomitant]
  7. DILANTIN [Concomitant]
  8. ZOCOR [Concomitant]
  9. NORTRIPTYLINE HCL [Concomitant]
  10. CIPRO [Concomitant]
  11. ASPIRIN [Concomitant]
  12. ATIVAN [Concomitant]
  13. LEXAPRO [Concomitant]

REACTIONS (19)
  - AORTIC ARTERIOSCLEROSIS [None]
  - AORTIC STENOSIS [None]
  - AORTIC VALVE INCOMPETENCE [None]
  - ASPIRATION [None]
  - BONE DISORDER [None]
  - BRONCHIAL WALL THICKENING [None]
  - BRONCHIOLITIS [None]
  - BRONCHOSPASM [None]
  - CANDIDIASIS [None]
  - CARDIAC ASTHMA [None]
  - EMPHYSEMA [None]
  - LUNG NEOPLASM [None]
  - NO THERAPEUTIC RESPONSE [None]
  - PLEURAL EFFUSION [None]
  - PULMONARY HYPERTENSION [None]
  - RESPIRATORY DISORDER [None]
  - RIB FRACTURE [None]
  - SPUTUM CULTURE POSITIVE [None]
  - STAPHYLOCOCCAL INFECTION [None]
